FAERS Safety Report 15027356 (Version 2)
Quarter: 2018Q2

REPORT INFORMATION
  Report Type: Report from Study
  Country: US (occurrence: US)
  Receive Date: 20180619
  Receipt Date: 20180619
  Transmission Date: 20180711
  Serious: Yes (Other)
  Sender: FDA-Public Use
  Company Number: US-HORIZON-PRE-0257-2018

PATIENT
  Age: 71 Year
  Sex: Female
  Weight: 55.79 kg

DRUGS (4)
  1. TACROLIMUS. [Suspect]
     Active Substance: TACROLIMUS
     Indication: PRODUCT USED FOR UNKNOWN INDICATION
  2. VALCYTE [Suspect]
     Active Substance: VALGANCICLOVIR HYDROCHLORIDE
     Indication: PRODUCT USED FOR UNKNOWN INDICATION
  3. PREDNISONE. [Suspect]
     Active Substance: PREDNISONE
     Indication: GRAFT VERSUS HOST DISEASE
     Dosage: 30 MG DAILY TAPERED
     Route: 048
     Dates: start: 20180503
  4. INCB039110 OR PLACEBO [Suspect]
     Active Substance: ITACITINIB
     Indication: GRAFT VERSUS HOST DISEASE
     Dosage: 200 MG QD TAPERED TO 100 QD ON 14-MAY-2018
     Dates: start: 20160421, end: 20180514

REACTIONS (6)
  - Fall [Not Recovered/Not Resolved]
  - Electrocardiogram T wave abnormal [None]
  - Muscular weakness [Not Recovered/Not Resolved]
  - Ventricular extrasystoles [None]
  - Electrocardiogram abnormal [Not Recovered/Not Resolved]
  - Laceration [Not Recovered/Not Resolved]

NARRATIVE: CASE EVENT DATE: 20180515
